FAERS Safety Report 4765332-6 (Version None)
Quarter: 2005Q3

REPORT INFORMATION
  Report Type: 
  Country: None (occurrence: None)
  Receive Date: 20050909
  Receipt Date: 20050609
  Transmission Date: 20060218
  Serious: Yes (Hospitalization)
  Sender: FDA-Public Use
  Company Number: US-MERCK-0506USA02041

PATIENT
  Age: 39 Year
  Sex: Female
  Weight: 96 kg

DRUGS (14)
  1. VIOXX [Suspect]
     Indication: FIBROMYALGIA
     Route: 048
     Dates: start: 20011002, end: 20031001
  2. CELEBREX [Suspect]
     Route: 065
  3. PERCOCET [Concomitant]
     Route: 065
  4. FLEXERIL [Concomitant]
     Route: 065
  5. PROTONIX [Concomitant]
     Route: 065
  6. IMITREX [Concomitant]
     Route: 065
     Dates: start: 19990101
  7. MOTRIN [Concomitant]
     Route: 065
     Dates: start: 19990101
  8. PREMARIN [Concomitant]
     Route: 065
     Dates: start: 20030301
  9. ELAVIL [Concomitant]
     Route: 065
     Dates: start: 20020101
  10. PROZAC [Concomitant]
     Route: 065
     Dates: start: 20020101, end: 20020101
  11. PAXIL [Concomitant]
     Route: 065
     Dates: start: 19990101, end: 20010101
  12. ZOLOFT [Concomitant]
     Route: 065
     Dates: start: 20030101, end: 20040101
  13. XANAX [Concomitant]
     Route: 065
     Dates: start: 19990101, end: 20020101
  14. VALIUM [Concomitant]
     Route: 065
     Dates: start: 20020101, end: 20020101

REACTIONS (13)
  - CARDIAC DISORDER [None]
  - CHEST PAIN [None]
  - DEPRESSION [None]
  - DERMATITIS CONTACT [None]
  - DYSPNOEA [None]
  - GALLBLADDER DISORDER [None]
  - HEART RATE IRREGULAR [None]
  - HYPERTENSION [None]
  - INFLUENZA [None]
  - JOINT SPRAIN [None]
  - LIVER DISORDER [None]
  - REFLUX OESOPHAGITIS [None]
  - THROMBOSIS [None]
